FAERS Safety Report 8383416-0 (Version None)
Quarter: 2012Q2

REPORT INFORMATION
  Report Type: 
  Country: None (occurrence: None)
  Receive Date: 20120522
  Receipt Date: 20120327
  Transmission Date: 20120825
  Serious: Yes (Other)
  Sender: FDA-Public Use
  Company Number: 2012P1010988

PATIENT
  Age: 32 Year
  Sex: Female
  Weight: 81.1939 kg

DRUGS (2)
  1. LAMOTRIGINE [Suspect]
     Indication: CONVULSION
     Dosage: 150 MG; QD; PO
     Route: 048
     Dates: start: 20110701, end: 20120325
  2. PAXIL [Concomitant]

REACTIONS (7)
  - CONVULSION [None]
  - RASH [None]
  - SWOLLEN TONGUE [None]
  - PETIT MAL EPILEPSY [None]
  - SKIN WARM [None]
  - PAIN [None]
  - ERYTHEMA [None]
